FAERS Safety Report 6269609-7 (Version None)
Quarter: 2009Q3

REPORT INFORMATION
  Report Type: 
  Country: None (occurrence: None)
  Receive Date: 20090714
  Receipt Date: 20090701
  Transmission Date: 20100115
  Serious: Yes (Hospitalization, Disabling)
  Sender: FDA-Public Use
  Company Number: 1-19015499

PATIENT
  Age: 49 Year
  Sex: Female
  Weight: 79.3795 kg

DRUGS (4)
  1. OVIDE [Suspect]
     Indication: ACCIDENTAL EXPOSURE
     Dosage: OPHTHALMIC/ INTRABRONCHIAL
     Route: 047
     Dates: start: 20090619, end: 20090619
  2. COUMADIN [Concomitant]
  3. NEXIUM [Concomitant]
  4. TOPROL-XL [Concomitant]

REACTIONS (5)
  - ACCIDENTAL EXPOSURE [None]
  - BLINDNESS UNILATERAL [None]
  - DYSPNOEA [None]
  - EYE IRRITATION [None]
  - OCULAR HYPERAEMIA [None]
